FAERS Safety Report 10423180 (Version 3)
Quarter: 2015Q2

REPORT INFORMATION
  Report Type: Report from Study
  Country: BR (occurrence: BR)
  Receive Date: 20140902
  Receipt Date: 20150407
  Transmission Date: 20150821
  Serious: Yes (Other)
  Sender: FDA-Public Use
  Company Number: PHHY2014BR109395

PATIENT
  Age: 53 Year
  Sex: Female
  Weight: 68 kg

DRUGS (4)
  1. LEVOTHYROXINE [Concomitant]
     Active Substance: LEVOTHYROXINE
     Indication: HYPOTHYROIDISM
     Dosage: (1 TABLET WITH 50 MCG + 1 TABLET WITH 25 MCG) IN FASTING
     Route: 065
  2. AROMASIN [Suspect]
     Active Substance: EXEMESTANE
     Indication: PRODUCT USED FOR UNKNOWN INDICATION
     Dosage: 1 DF (25 MG), QD
     Route: 065
     Dates: start: 201407
  3. AFINITOR [Suspect]
     Active Substance: EVEROLIMUS
     Indication: SPINAL CORD NEOPLASM
     Dosage: 10 MG, QD (1 TABLET PER DAY)
     Route: 048
     Dates: start: 201410, end: 201501
  4. AFINITOR [Suspect]
     Active Substance: EVEROLIMUS
     Indication: BREAST CANCER
     Dosage: 1 DF, QD
     Route: 048
     Dates: start: 20140820

REACTIONS (7)
  - Skin disorder [Unknown]
  - Bone cancer [Not Recovered/Not Resolved]
  - Product use issue [Unknown]
  - Weight decreased [Not Recovered/Not Resolved]
  - Pain [Not Recovered/Not Resolved]
  - Drug ineffective [Unknown]
  - Arthralgia [Unknown]

NARRATIVE: CASE EVENT DATE: 20140825
